FAERS Safety Report 9397309 (Version 1)
Quarter: 2013Q3

REPORT INFORMATION
  Report Type: Spontaneous
  Country: BR (occurrence: BR)
  Receive Date: 20130712
  Receipt Date: 20130712
  Transmission Date: 20140515
  Serious: Yes (Hospitalization)
  Sender: FDA-Public Use
  Company Number: BR-ELI_LILLY_AND_COMPANY-BR201307001652

PATIENT
  Age: 26 Year
  Sex: Female
  Weight: 62 kg

DRUGS (6)
  1. HUMALOG [Suspect]
     Indication: TYPE 1 DIABETES MELLITUS
     Dosage: 5 IU, OTHER
     Route: 058
     Dates: start: 2009
  2. HUMALOG [Suspect]
     Dosage: 5 IU, OTHER
     Route: 058
     Dates: start: 20130628, end: 20130630
  3. HUMALOG [Concomitant]
     Dosage: UNK, UNKNOWN
     Route: 065
  4. LANTUS [Concomitant]
     Indication: TYPE 1 DIABETES MELLITUS
     Dosage: 35 IU, QD
     Route: 065
     Dates: start: 2005
  5. ARADOIS [Concomitant]
     Indication: HYPERTENSION
     Dosage: 100 MG, BID
     Route: 065
     Dates: start: 2012
  6. APRESOLINA [Concomitant]
     Indication: HYPERTENSION
     Dosage: 50 MG, BID
     Route: 065
     Dates: start: 2012

REACTIONS (4)
  - Vomiting [Unknown]
  - Headache [Unknown]
  - Blood glucose increased [Recovered/Resolved]
  - Drug ineffective [Unknown]
